FAERS Safety Report 6676126-9 (Version None)
Quarter: 2010Q2

REPORT INFORMATION
  Report Type: 
  Country: None (occurrence: None)
  Receive Date: 20100412
  Receipt Date: 20100331
  Transmission Date: 20101027
  Serious: Yes (Life-Threatening)
  Sender: FDA-Public Use
  Company Number: GB-PFIZER INC-2010041542

PATIENT
  Age: 77 Year
  Sex: Male

DRUGS (1)
  1. SUTENT [Suspect]
     Dosage: 37.5 MG, UNK

REACTIONS (3)
  - HYPOTENSION [None]
  - PULMONARY EMBOLISM [None]
  - RENAL IMPAIRMENT [None]
